FAERS Safety Report 9928663 (Version 1)
Quarter: 2014Q1

REPORT INFORMATION
  Report Type: Spontaneous
  Country: US (occurrence: None)
  Receive Date: 20140226
  Receipt Date: 20140226
  Transmission Date: 20141002
  Serious: Yes (Life-Threatening)
  Sender: FDA-Public Use
  Company Number: None

PATIENT
  Age: 61 Year
  Sex: Female
  Weight: 89.36 kg

DRUGS (12)
  1. HEPARIN 1000 UNITS/ML PORCINE [Suspect]
     Indication: CORONARY ARTERY BYPASS
     Dosage: 30 K UNITS IV
     Route: 042
     Dates: start: 20121219
  2. ASA [Concomitant]
  3. NITRO [Concomitant]
  4. PRILOSEC [Concomitant]
  5. LIPITOR [Concomitant]
  6. APIDRA [Concomitant]
  7. METOPROLOL [Concomitant]
  8. LISINOPRIL [Concomitant]
  9. PREDNISONE [Concomitant]
  10. ADVAIR [Concomitant]
  11. JANUVIA [Concomitant]
  12. METFORMIN [Concomitant]

REACTIONS (1)
  - Anaphylactic reaction [None]
